FAERS Safety Report 9761215 (Version 1)
Quarter: 2013Q4

REPORT INFORMATION
  Report Type: Spontaneous
  Country: US (occurrence: US)
  Receive Date: 20131216
  Receipt Date: 20131216
  Transmission Date: 20140711
  Serious: Yes (Other)
  Sender: FDA-Public Use
  Company Number: US-PFIZER INC-2013358022

PATIENT
  Age: 74 Year
  Sex: Female
  Weight: 75.74 kg

DRUGS (1)
  1. VERAPAMIL HCL [Suspect]
     Indication: HYPERTENSION
     Dosage: 120 MG, UNK
     Route: 048
     Dates: start: 201103, end: 2011

REACTIONS (1)
  - Atrial fibrillation [Recovered/Resolved]
